FAERS Safety Report 4642587-X (Version None)
Quarter: 2005Q2

REPORT INFORMATION
  Report Type: 
  Country: None (occurrence: None)
  Receive Date: 20050420
  Receipt Date: 20041104
  Transmission Date: 20051028
  Serious: Yes (Hospitalization)
  Sender: FDA-Public Use
  Company Number: 9187

PATIENT
  Age: 17 Year
  Sex: Female

DRUGS (2)
  1. METOCLOPRAMIDE [Suspect]
     Dosage: ISP
     Route: 024
  2. BUPIVACAINE [Concomitant]

REACTIONS (12)
  - ACCIDENTAL EXPOSURE [None]
  - AGITATION [None]
  - ANAESTHETIC COMPLICATION [None]
  - DRUG EXPOSURE DURING PREGNANCY [None]
  - HEADACHE [None]
  - HYPERTENSION [None]
  - NAUSEA [None]
  - SOMNOLENCE [None]
  - TACHYCARDIA [None]
  - VISION BLURRED [None]
  - VOMITING [None]
  - WRONG DRUG ADMINISTERED [None]
